FAERS Safety Report 21561796 (Version 1)
Quarter: 2022Q4

REPORT INFORMATION
  Report Type: Spontaneous
  Country: CN (occurrence: CN)
  Receive Date: 20221107
  Receipt Date: 20221107
  Transmission Date: 20230113
  Serious: Yes (Hospitalization, Other)
  Sender: FDA-Public Use
  Company Number: None

PATIENT
  Age: 65 Year
  Sex: Female
  Weight: 43 kg

DRUGS (10)
  1. CYCLOPHOSPHAMIDE [Suspect]
     Active Substance: CYCLOPHOSPHAMIDE
     Indication: Diffuse large B-cell lymphoma
     Dosage: 1 G, QD, DILUTED WITH 500 ML 0.9% SODIUM CHLORIDE INJECTION
     Route: 041
     Dates: start: 20221005, end: 20221005
  2. SODIUM CHLORIDE [Suspect]
     Active Substance: SODIUM CHLORIDE
     Indication: Medication dilution
     Dosage: 500 ML, QD, USED TO DILUTE 1 G OF CYCLOPHOSPHAMIDE INJECTION
     Route: 041
     Dates: start: 20221005, end: 20221005
  3. SODIUM CHLORIDE [Suspect]
     Active Substance: SODIUM CHLORIDE
     Dosage: 100 ML, QD, USED TO DILUTE 100 MG OF RITUXIMAB INJECTION
     Route: 041
     Dates: start: 20221004, end: 20221004
  4. SODIUM CHLORIDE [Suspect]
     Active Substance: SODIUM CHLORIDE
     Dosage: 500 ML, QD, USED TO DILUTE 400 MG RITUXIMAB INJECTION
     Route: 041
     Dates: start: 20221004, end: 20221004
  5. SODIUM CHLORIDE [Suspect]
     Active Substance: SODIUM CHLORIDE
     Dosage: 100ML, QD, USED TO DILUTE 1.9 G VINCRISTINE SULFATE INJECTION
     Route: 041
     Dates: start: 20221005, end: 20221005
  6. DEXTROSE MONOHYDRATE [Suspect]
     Active Substance: DEXTROSE MONOHYDRATE
     Indication: Medication dilution
     Dosage: 2500 ML, QD, USED TO DILUTE 60 MG PIRARUBICIN HYDROCHLORIDE INJECTION
     Route: 041
     Dates: start: 20221005, end: 20221005
  7. RITUXIMAB [Suspect]
     Active Substance: RITUXIMAB
     Indication: Diffuse large B-cell lymphoma
     Dosage: 100 MG, QD, DILUTED WITH 100 ML 0.9% SODIUM CHLORIDE INJECTION
     Route: 041
     Dates: start: 20221004, end: 20221004
  8. RITUXIMAB [Suspect]
     Active Substance: RITUXIMAB
     Dosage: 100 MG, QD, DILUTED WITH 100 ML 0.9% SODIUM CHLORIDE INJECTION
     Route: 041
     Dates: start: 20221004, end: 20221004
  9. PIRARUBICIN HYDROCHLORIDE [Suspect]
     Active Substance: PIRARUBICIN HYDROCHLORIDE
     Indication: Diffuse large B-cell lymphoma
     Dosage: 60 MG, QD, DILUTED WITH 2500 ML 5% GLUCOSE INJECTION
     Route: 041
     Dates: start: 20221005, end: 20221005
  10. VINCRISTINE SULFATE [Suspect]
     Active Substance: VINCRISTINE SULFATE
     Indication: Diffuse large B-cell lymphoma
     Dosage: 1.9 G, QD, DILUTED WITH 100 ML 0.9% SODIUM CHLORIDE INJECTION
     Route: 041
     Dates: start: 20221005, end: 20221005

REACTIONS (1)
  - Myelosuppression [Recovering/Resolving]

NARRATIVE: CASE EVENT DATE: 20221009
